FAERS Safety Report 25732296 (Version 3)
Quarter: 2025Q4

REPORT INFORMATION
  Report Type: Spontaneous
  Country: HN (occurrence: HN)
  Receive Date: 20250827
  Receipt Date: 20251006
  Transmission Date: 20260117
  Serious: No
  Sender: PFIZER
  Company Number: HN-PFIZER INC-PV202500102758

PATIENT
  Age: 8 Year
  Sex: Female

DRUGS (1)
  1. GENOTROPIN [Suspect]
     Active Substance: SOMATROPIN
     Dosage: ONCE IN THE NIGHT

REACTIONS (2)
  - Wrong technique in device usage process [Unknown]
  - Product communication issue [Unknown]
